FAERS Safety Report 16939784 (Version 3)
Quarter: 2020Q2

REPORT INFORMATION
  Report Type: Spontaneous
  Country: JP (occurrence: JP)
  Receive Date: 20191021
  Receipt Date: 20200518
  Transmission Date: 20200713
  Serious: Yes (Death, Other)
  Sender: FDA-Public Use
  Company Number: JP-GLAXOSMITHKLINE-JP2019JPN189940

PATIENT
  Sex: Female
  Weight: 59 kg

DRUGS (36)
  1. BENLYSTA [Suspect]
     Active Substance: BELIMUMAB
     Dosage: 10 MG/KG, EVERY FOUR WEEKS
     Route: 041
     Dates: start: 20180502, end: 20180822
  2. PREDONINE [Concomitant]
     Active Substance: PREDNISOLONE
     Dosage: 12 MG, 1D
     Route: 048
     Dates: start: 20180916, end: 20181010
  3. LIVALO OD TABLETS [Concomitant]
     Dosage: UNK
  4. PLAVIX TABLET [Concomitant]
     Dosage: UNK
  5. BAKTAR COMBINATION TABLETS [Concomitant]
     Active Substance: SULFAMETHOXAZOLE\TRIMETHOPRIM
     Indication: PROPHYLAXIS
     Dosage: UNK
  6. ACTONEL TABLETS [Concomitant]
     Dosage: UNK
  7. CALONAL TABLET [Concomitant]
     Dosage: UNK
  8. MIRCERA INJECTION SYRINGE [Concomitant]
     Dosage: UNK
  9. BIOLACTIS POWDER [Concomitant]
     Dosage: UNK
  10. CRAVIT TABLETS [Concomitant]
     Dosage: UNK
  11. LENDORMIN D [Concomitant]
     Active Substance: BROTIZOLAM
     Dosage: UNK
  12. CELLCEPT [Concomitant]
     Active Substance: MYCOPHENOLATE MOFETIL\MYCOPHENOLATE MOFETIL HYDROCHLORIDE
     Indication: SYSTEMIC LUPUS ERYTHEMATOSUS
     Dosage: UNK
  13. FEBURIC TABLETS [Concomitant]
     Active Substance: FEBUXOSTAT
     Dosage: UNK
  14. VENILON-I INTRAVENOUS INJECTION [Concomitant]
     Dosage: UNK
  15. PREDONINE [Concomitant]
     Active Substance: PREDNISOLONE
     Dosage: 13 MG, 1D
     Route: 048
     Dates: start: 20180823, end: 20180915
  16. PREDONINE [Concomitant]
     Active Substance: PREDNISOLONE
     Dosage: 11 MG, 1D
     Route: 048
     Dates: start: 20181011
  17. VENILON-I INTRAVENOUS INJECTION [Concomitant]
     Indication: HYPOGAMMAGLOBULINAEMIA
     Dosage: 5000 MG, EVERY FOUR WEEKS
     Dates: start: 20180822, end: 20181010
  18. FERROMIA TABLETS [Concomitant]
     Dosage: UNK
  19. OLMETEC [Concomitant]
     Active Substance: OLMESARTAN MEDOXOMIL
     Dosage: UNK
  20. THYRADIN S [Concomitant]
     Active Substance: LEVOTHYROXINE SODIUM
     Dosage: UNK
  21. TAKECAB TABLETS [Concomitant]
     Indication: PROPHYLAXIS
     Dosage: UNK
  22. HUMULIN R PEN [Concomitant]
     Dosage: UNK
  23. BENLYSTA [Suspect]
     Active Substance: BELIMUMAB
     Indication: SYSTEMIC LUPUS ERYTHEMATOSUS
     Dosage: 10 MG/KG, EVERY OTHER WEEKS
     Route: 041
     Dates: start: 20180307, end: 20180403
  24. ADALAT-CR TABLET [Concomitant]
     Dosage: UNK
  25. LIPIDIL [Concomitant]
     Active Substance: FENOFIBRATE
     Dosage: UNK
  26. POSTERISAN FORTE OINTMENT (E. COLI + HYDROCORTISONE) [Concomitant]
     Dosage: UNK
  27. ROHYPNOL TABLETS [Concomitant]
     Dosage: UNK
  28. TRAMAL OD TABLETS [Concomitant]
     Dosage: UNK
  29. PREDONINE [Concomitant]
     Active Substance: PREDNISOLONE
     Indication: SYSTEMIC LUPUS ERYTHEMATOSUS
     Dosage: 14 MG, 1D
     Route: 048
     Dates: start: 20170823, end: 20180822
  30. PRAZAXA CAPSULES [Concomitant]
     Dosage: UNK
  31. LASIX [Concomitant]
     Active Substance: FUROSEMIDE
     Dosage: UNK
  32. HYDROCHLOROTHIAZIDE TABLETS [Concomitant]
     Active Substance: HYDROCHLOROTHIAZIDE
     Dosage: UNK
  33. TAKEPRON [Concomitant]
     Active Substance: LANSOPRAZOLE
     Indication: PROPHYLAXIS
     Dosage: UNK
  34. LOXONIN TAPE [Concomitant]
     Active Substance: LOXOPROFEN SODIUM DIHYDRATE
     Dosage: UNK
  35. BENLYSTA [Suspect]
     Active Substance: BELIMUMAB
     Dosage: UNK, EVERY FOUR WEEKS
     Route: 041
     Dates: start: 20180915, end: 20181010
  36. METHYCOBAL INJECTION [Concomitant]
     Dosage: UNK

REACTIONS (1)
  - Death [Fatal]
